FAERS Safety Report 5705446-7 (Version None)
Quarter: 2008Q2

REPORT INFORMATION
  Report Type: 
  Country: None (occurrence: None)
  Receive Date: 20080410
  Receipt Date: 20080401
  Transmission Date: 20081010
  Serious: Yes (Other)
  Sender: FDA-Public Use
  Company Number: 2008AP000718

PATIENT
  Age: 13 Year
  Sex: Male

DRUGS (2)
  1. DICLOFENAC POTASSIUM [Suspect]
     Indication: DENTAL TREATMENT
     Dosage: 50 MG; 1X PO, 50 MG; TAB; PO; 1X
     Route: 048
     Dates: start: 20050301, end: 20050301
  2. DICLOFENAC POTASSIUM [Suspect]
     Indication: DENTAL TREATMENT
     Dosage: 50 MG; 1X PO, 50 MG; TAB; PO; 1X
     Route: 048
     Dates: start: 20050301, end: 20050301

REACTIONS (2)
  - GRAND MAL CONVULSION [None]
  - SYNCOPE [None]
